FAERS Safety Report 8059218-1 (Version None)
Quarter: 2012Q1

REPORT INFORMATION
  Report Type: 
  Country: None (occurrence: None)
  Receive Date: 20120112
  Receipt Date: 20120105
  Transmission Date: 20120608
  Serious: Yes (Disabling, Other)
  Sender: FDA-Public Use
  Company Number: 2011MA002905

PATIENT
  Sex: Female

DRUGS (69)
  1. ACIPHEX [Concomitant]
  2. BENZTROPINE MESYLATE [Concomitant]
  3. CEPHALEXIN [Concomitant]
  4. HYDROCODONE BITARTRATE AND ACETAMINOPHEN [Concomitant]
  5. MAGNESIUM OXIDE [Concomitant]
  6. METHOCARBAMOL [Concomitant]
  7. PAXIL [Concomitant]
  8. PENTOXIFYLLINE [Concomitant]
  9. RISPERDAL [Concomitant]
  10. VIOXX [Concomitant]
  11. AMITRIPTYLINE HCL [Concomitant]
  12. IBUPROFEN [Concomitant]
  13. NORTRIPTYLINE HCL [Concomitant]
  14. PROPOXYPHENE HCL AND ACETAMINOPHEN [Concomitant]
  15. RANITIDINE [Concomitant]
  16. METOCLOPRAMIDE [Suspect]
     Indication: GASTROINTESTINAL DISORDER
     Dosage: 10 MG; QID; UNK
     Dates: start: 20000115, end: 20060901
  17. AVINZA [Concomitant]
  18. BIAXIN XL [Concomitant]
  19. CHLORPHENIRAMINE MALEATE [Concomitant]
  20. CIMETIDINE [Concomitant]
  21. CLOTRIMAZOLE [Concomitant]
  22. CYCLOBENZAPRINE [Concomitant]
  23. CYPROHEPTADINE HCL [Concomitant]
  24. DICYCLOMINE [Concomitant]
  25. HYDROXYZINE [Concomitant]
  26. NASACORT AQ [Concomitant]
  27. MULTI-VITAMINS [Concomitant]
  28. REMERON SOLTAB [Concomitant]
  29. TRAMADOL HCL [Concomitant]
  30. ABILIFY [Concomitant]
  31. CLONAZEPAM [Concomitant]
  32. NASONEX [Concomitant]
  33. PREDNISONE [Concomitant]
  34. ZOLOFT [Concomitant]
  35. ZYPREXA [Concomitant]
  36. ALLEGRA-D 12 HOUR [Concomitant]
  37. AMBIEN [Concomitant]
  38. CEFACLOR [Concomitant]
  39. FERROUS SULFATE TAB [Concomitant]
  40. HYOSCYAMINE [Concomitant]
  41. METHYLPREDNISOLONE ACETATE [Concomitant]
  42. PEG-3350 [Concomitant]
  43. PROMETHAZINE [Concomitant]
  44. PROZAC [Concomitant]
  45. DIPHENHYDRAMINE HCL [Concomitant]
  46. DOXEPIN [Concomitant]
  47. GENTAMICIN [Concomitant]
  48. NEURONTIN [Concomitant]
  49. NYSTATIN [Concomitant]
  50. PROTONIX [Concomitant]
  51. PEUDOEPHEDRINE [Concomitant]
  52. SUMYCIN [Concomitant]
  53. CLARITIN [Concomitant]
  54. EZOL [Concomitant]
  55. GUIATUSS DM [Concomitant]
  56. INDOMETHACIN [Concomitant]
  57. MEPROZINE [Concomitant]
  58. METRONIDAZOLE [Concomitant]
  59. NAPROXEN [Concomitant]
  60. OXYCODONE/ACETAMINOPHEN [Concomitant]
  61. DIAZEPAM [Concomitant]
  62. FLORINEF [Concomitant]
  63. HALOPERIDOL [Concomitant]
  64. LORAZEPAM [Concomitant]
  65. PHENAZOPYRIDINE HCL TAB [Concomitant]
  66. POTASSIUM CHLORIDE [Concomitant]
  67. SKELAXIN [Interacting]
  68. ZYPREXA [Concomitant]
  69. TRAZODONE HCL [Concomitant]

REACTIONS (8)
  - EXTRAPYRAMIDAL DISORDER [None]
  - TARDIVE DYSKINESIA [None]
  - PAIN [None]
  - ANXIETY [None]
  - IMPAIRED WORK ABILITY [None]
  - FAMILY STRESS [None]
  - EXCESSIVE EYE BLINKING [None]
  - ECONOMIC PROBLEM [None]
